FAERS Safety Report 10511606 (Version 1)
Quarter: 2014Q4

REPORT INFORMATION
  Report Type: Spontaneous
  Country: US (occurrence: US)
  Receive Date: 20141010
  Receipt Date: 20141010
  Transmission Date: 20150528
  Serious: No
  Sender: FDA-Public Use
  Company Number: US-009507513-1410USA002456

PATIENT
  Age: 5 Year
  Sex: Male
  Weight: 23.58 kg

DRUGS (2)
  1. CLARITIN [Suspect]
     Active Substance: LORATADINE
     Dosage: 5 MG, BID
     Route: 048
     Dates: start: 20140930
  2. CLARITIN [Suspect]
     Active Substance: LORATADINE
     Indication: SEASONAL ALLERGY
     Dosage: 5 MG, QD
     Route: 048
     Dates: start: 201409

REACTIONS (2)
  - No adverse event [Unknown]
  - Overdose [Unknown]

NARRATIVE: CASE EVENT DATE: 20140930
